FAERS Safety Report 10167629 (Version 2)
Quarter: 2014Q3

REPORT INFORMATION
  Report Type: Report from Study
  Country: US (occurrence: US)
  Receive Date: 20140512
  Receipt Date: 20140919
  Transmission Date: 20150326
  Serious: Yes (Death, Hospitalization, Other)
  Sender: FDA-Public Use
  Company Number: US-GILEAD-2014-0101732

PATIENT
  Age: 14 Year
  Sex: Female
  Weight: 30.8 kg

DRUGS (28)
  1. PULMOZYME [Concomitant]
     Active Substance: DORNASE ALFA
  2. MINERAL OIL. [Concomitant]
     Active Substance: MINERAL OIL
  3. VITAMIN K [Concomitant]
     Active Substance: PHYTONADIONE
  4. ZOFRAN [Concomitant]
     Active Substance: ONDANSETRON HYDROCHLORIDE
  5. MILIK OF MAGNESIA [Concomitant]
  6. MELOXICAM. [Concomitant]
     Active Substance: MELOXICAM
  7. AZITHROMYCIN [Concomitant]
     Active Substance: AZITHROMYCIN ANHYDROUS
     Indication: ANTIINFLAMMATORY THERAPY
  8. VITAMIN C [Concomitant]
     Active Substance: ASCORBIC ACID
  9. ACTIGALL [Concomitant]
     Active Substance: URSODIOL
  10. FLEXERIL [Concomitant]
     Active Substance: CYCLOBENZAPRINE HYDROCHLORIDE
  11. LEVOCARNITINE. [Concomitant]
     Active Substance: LEVOCARNITINE
  12. AQUADEKS [Concomitant]
  13. 7% HYPERTONIC SALINE [Concomitant]
  14. PERIACTIN [Concomitant]
     Active Substance: CYPROHEPTADINE HYDROCHLORIDE
  15. CREON [Concomitant]
     Active Substance: PANCRELIPASE AMYLASE\PANCRELIPASE LIPASE\PANCRELIPASE PROTEASE
  16. SINGULAIR [Concomitant]
     Active Substance: MONTELUKAST SODIUM
  17. DUONEB [Concomitant]
     Active Substance: ALBUTEROL SULFATE\IPRATROPIUM BROMIDE
  18. PULMICORT TURBUHALER [Concomitant]
     Active Substance: BUDESONIDE
  19. LACTOBACILLUS [Concomitant]
     Active Substance: LACTOBACILLUS ACIDOPHILUS
  20. SIMETHICONE [Concomitant]
     Active Substance: DIMETHICONE\SILICON DIOXIDE\SIMETHICONE
  21. TOBI [Concomitant]
     Active Substance: TOBRAMYCIN
     Dosage: UNK, BID ALTERNATING EVERY OTHER MONTH
     Route: 055
  22. VITAMIN D [Concomitant]
     Active Substance: CHOLECALCIFEROL
  23. RHINOCORT [Concomitant]
     Active Substance: BUDESONIDE
  24. GOLYTELY [Concomitant]
     Active Substance: POLYETHYLENE GLYCOL 3350\POTASSIUM CHLORIDE\SODIUM BICARBONATE\SODIUM CHLORIDE\SODIUM SULFATE ANHYDROUS
     Indication: IRRIGATION THERAPY
  25. AZTREONAM LYSINE [Suspect]
     Active Substance: AZTREONAM LYSINE
     Indication: CYSTIC FIBROSIS LUNG
     Dosage: 75 MG, TID ALTERNATING EVERY OTHER MONTH
     Route: 055
     Dates: start: 20130716, end: 20140227
  26. DRONABINOL. [Concomitant]
     Active Substance: DRONABINOL
  27. MARINOL [Concomitant]
     Active Substance: DRONABINOL
     Indication: APPETITE DISORDER
  28. ETHANOL [Concomitant]
     Active Substance: ALCOHOL

REACTIONS (12)
  - Drug ineffective [Unknown]
  - Pneumonia pseudomonal [Fatal]
  - Mycobacterium abscessus infection [Recovered/Resolved]
  - Device related infection [Unknown]
  - Renal failure [Unknown]
  - Septic shock [Fatal]
  - Multi-organ failure [Fatal]
  - Infective pulmonary exacerbation of cystic fibrosis [Unknown]
  - Weight decreased [Unknown]
  - Pneumothorax [Fatal]
  - Staphylococcal bacteraemia [Fatal]
  - Respiratory failure [Fatal]

NARRATIVE: CASE EVENT DATE: 20140131
